FAERS Safety Report 5172148-8 (Version None)
Quarter: 2006Q4

REPORT INFORMATION
  Report Type: 
  Country: None (occurrence: None)
  Receive Date: 20061213
  Receipt Date: 20061206
  Transmission Date: 20070319
  Serious: Yes (Other)
  Sender: FDA-Public Use
  Company Number: IT-ROXANE LABORATORIES, INC-2006-BP-14197RO

PATIENT
  Age: 65 Year
  Sex: Female

DRUGS (6)
  1. DEXAMETHASONE [Suspect]
     Indication: MULTIPLE MYELOMA
     Route: 042
  2. PREDNISONE TAB [Suspect]
     Indication: MULTIPLE MYELOMA
     Route: 048
  3. VINCRISTINE [Suspect]
     Indication: MULTIPLE MYELOMA
     Route: 042
  4. ADRIAMYCIN PFS [Suspect]
     Indication: MULTIPLE MYELOMA
     Route: 042
  5. MELPHALAN [Suspect]
     Indication: MULTIPLE MYELOMA
     Route: 048
  6. ZOLEDRONATE [Suspect]
     Indication: PROPHYLAXIS
     Route: 042

REACTIONS (1)
  - OSTEONECROSIS [None]
